FAERS Safety Report 4911083-4 (Version None)
Quarter: 2006Q1

REPORT INFORMATION
  Report Type: 
  Country: None (occurrence: None)
  Receive Date: 20060209
  Receipt Date: 20060131
  Transmission Date: 20060701
  Serious: Yes (Hospitalization)
  Sender: FDA-Public Use
  Company Number: 2006015351

PATIENT
  Age: 86 Year
  Sex: Male

DRUGS (9)
  1. CABERGOLINE [Suspect]
     Indication: ILL-DEFINED DISORDER
     Dosage: 2 MG, ORAL
     Route: 048
  2. HALOPERIDOL [Suspect]
     Indication: ILL-DEFINED DISORDER
     Dosage: 2.5 MG, ONCE, SUBCUTANEOUS
     Route: 058
     Dates: start: 20051012, end: 20051012
  3. LORAZEPAM [Suspect]
     Indication: ILL-DEFINED DISORDER
     Dosage: ORAL
     Route: 048
  4. LEVODOPA-CARBIDOPA (CARBIDOPA, LEVODOPA) [Suspect]
     Indication: ILL-DEFINED DISORDER
     Dosage: ORAL
     Route: 048
  5. TIAPRIDE (TIAPRIDE) [Suspect]
     Indication: ILL-DEFINED DISORDER
     Dosage: 200 MG (100 MG, BID INTERVAL: EVERY DAY), ORAL
     Route: 048
     Dates: start: 20051010
  6. MAPROTILINE [Suspect]
     Indication: ILL-DEFINED DISORDER
     Dosage: 10 MG, ORAL
     Route: 048
  7. ACETAMINOPHEN [Concomitant]
  8. OMEPRAZOLE [Concomitant]
  9. DIPYRONE TAB [Concomitant]

REACTIONS (3)
  - CEREBROVASCULAR DISORDER [None]
  - DRUG INTERACTION [None]
  - TREMOR [None]
